FAERS Safety Report 4932413-3 (Version None)
Quarter: 2006Q1

REPORT INFORMATION
  Report Type: 
  Country: None (occurrence: None)
  Receive Date: 20060301
  Receipt Date: 20060220
  Transmission Date: 20060701
  Serious: Yes (Hospitalization)
  Sender: FDA-Public Use
  Company Number: LTI2006A00050

PATIENT
  Age: 78 Year
  Sex: Male

DRUGS (8)
  1. PIOGLITAZONE HCL [Suspect]
     Indication: DIABETES MELLITUS NON-INSULIN-DEPENDENT
     Dosage: 1 TAB. (1 TAB., 1 D)
     Route: 048
     Dates: end: 20051116
  2. HUMULIN U [Suspect]
     Indication: DIABETES MELLITUS NON-INSULIN-DEPENDENT
     Dosage: (2 IN 1 D)
     Route: 058
  3. FONZYLANE (BULFOMEDIL HYDROCHLORIDE) [Concomitant]
  4. NOOTROPYL (PIRACETAM) [Concomitant]
  5. RISORDAN (ISOSORBIDE DINITRATE) [Concomitant]
  6. COZAAR (LOSATAN POTASSIUM) [Concomitant]
  7. PRAVASTATIN [Concomitant]
  8. PLAVIX [Concomitant]

REACTIONS (4)
  - BRONCHITIS [None]
  - CONFUSIONAL STATE [None]
  - DRUG INTERACTION [None]
  - LEFT VENTRICULAR FAILURE [None]
